FAERS Safety Report 10252546 (Version 1)
Quarter: 2014Q2

REPORT INFORMATION
  Report Type: Spontaneous
  Country: US (occurrence: None)
  Receive Date: 20140619
  Receipt Date: 20140619
  Transmission Date: 20141212
  Serious: Yes (Other)
  Sender: FDA-Public Use
  Company Number: A1077047A

PATIENT
  Age: 49 Year
  Sex: Female

DRUGS (3)
  1. CALCIUM CARBONATE TABLET (CALCIUM CARBONATE) [Suspect]
     Indication: DYSPEPSIA
     Route: 048
  2. BLOOD PRESSURE UNK [Concomitant]
  3. DIABETES MEDICATION UNK [Concomitant]

REACTIONS (2)
  - Dependence [None]
  - Overdose [None]
